FAERS Safety Report 6627622-1 (Version None)
Quarter: 2010Q1

REPORT INFORMATION
  Report Type: 
  Country: None (occurrence: None)
  Receive Date: 20100308
  Receipt Date: 20100302
  Transmission Date: 20100710
  Serious: Yes (Hospitalization, Disabling, Other)
  Sender: FDA-Public Use
  Company Number: 2010SP007964

PATIENT
  Age: 49 Year
  Sex: Female

DRUGS (2)
  1. DIPROSPAN (BETAMETHASONE SODIUM (BETAMETHASONE [Suspect]
     Indication: MUSCULOSKELETAL DISORDER
     Dosage: ;ONCE;
     Dates: start: 20080618, end: 20080618
  2. DICLOFENAC RAPID [Concomitant]

REACTIONS (10)
  - CHORIORETINOPATHY [None]
  - DIZZINESS [None]
  - EYE DISORDER [None]
  - EYE PAIN [None]
  - HEADACHE [None]
  - NAUSEA [None]
  - PAIN IN JAW [None]
  - SCOTOMA [None]
  - VISION BLURRED [None]
  - VISUAL IMPAIRMENT [None]
